APPROVED DRUG PRODUCT: CARBINOXAMINE MALEATE
Active Ingredient: CARBINOXAMINE MALEATE
Strength: 4MG/5ML
Dosage Form/Route: SOLUTION;ORAL
Application: A040458 | Product #001
Applicant: GENUS LIFESCIENCES INC
Approved: Apr 25, 2003 | RLD: No | RS: Yes | Type: RX